FAERS Safety Report 7790583-6 (Version None)
Quarter: 2011Q3

REPORT INFORMATION
  Report Type: 
  Country: None (occurrence: None)
  Receive Date: 20110930
  Receipt Date: 20110927
  Transmission Date: 20111222
  Serious: Yes (Hospitalization)
  Sender: FDA-Public Use
  Company Number: DE-AMGEN-DEUNI2010003309

PATIENT
  Age: 16 Year
  Sex: Male

DRUGS (12)
  1. GENOTROPIN [Concomitant]
     Dosage: 2 MG, UNK
  2. MAGNESIUM [Concomitant]
     Dosage: 10 MG, UNK
  3. BICA [Concomitant]
     Dosage: 1 G, UNK
  4. LASIX [Concomitant]
  5. ROCALTROL [Concomitant]
     Dosage: 0.25 MUG, UNK
  6. DARBEPOETIN ALFA [Suspect]
     Indication: RENAL FAILURE CHRONIC
     Dosage: 15 MUG, QWK
     Route: 042
     Dates: start: 20040827
  7. CALCIUM CARBONATE [Concomitant]
     Dosage: 1.2 G, UNK
  8. CALCIUM ACETATE [Concomitant]
     Dosage: 500 MG, UNK
  9. BUDENOFALK [Concomitant]
     Dosage: 3 MG, UNK
  10. METOPROLOL TARTRATE [Concomitant]
  11. CYCLOSPORINE [Concomitant]
  12. PREDNISONE [Concomitant]

REACTIONS (1)
  - BLOOD CREATININE INCREASED [None]
